FAERS Safety Report 11573691 (Version 1)
Quarter: 2015Q3

REPORT INFORMATION
  Report Type: Spontaneous
  Country: DK (occurrence: DK)
  Receive Date: 20150929
  Receipt Date: 20150929
  Transmission Date: 20151125
  Serious: Yes (Other)
  Sender: FDA-Public Use
  Company Number: DK-BAXTER-2015BAX052144

PATIENT
  Age: 54 Year
  Sex: Female

DRUGS (5)
  1. SENDOXAN [Suspect]
     Active Substance: CYCLOPHOSPHAMIDE
     Indication: BREAST CANCER STAGE II
     Route: 065
     Dates: start: 2011
  2. SENDOXAN [Suspect]
     Active Substance: CYCLOPHOSPHAMIDE
     Route: 065
     Dates: start: 20110504, end: 20110504
  3. EPIRUBICIN ACTAVIS [Suspect]
     Active Substance: EPIRUBICIN
     Indication: BREAST CANCER STAGE II
     Route: 065
     Dates: start: 2011
  4. TAXOTERE [Suspect]
     Active Substance: DOCETAXEL
     Indication: BREAST CANCER STAGE II
     Route: 065
     Dates: start: 201105, end: 201105
  5. EPIRUBICIN ACTAVIS [Suspect]
     Active Substance: EPIRUBICIN
     Route: 065
     Dates: start: 20110504, end: 20110504

REACTIONS (4)
  - Arrhythmia [Unknown]
  - Meningioma [Not Recovered/Not Resolved]
  - Angina pectoris [Recovered/Resolved]
  - Musculoskeletal pain [Unknown]

NARRATIVE: CASE EVENT DATE: 20110418
